FAERS Safety Report 4609359-3 (Version None)
Quarter: 2005Q1

REPORT INFORMATION
  Report Type: 
  Country: None (occurrence: None)
  Receive Date: 20050314
  Receipt Date: 20050228
  Transmission Date: 20050727
  Serious: Yes (Other)
  Sender: FDA-Public Use
  Company Number: 2005038695

PATIENT
  Age: 92 Year
  Sex: Male
  Weight: 50 kg

DRUGS (4)
  1. AMLODIPINE [Suspect]
     Indication: HYPERTENSION
     Dosage: 5 MG (5 MG, DAILY), ORAL
     Route: 048
     Dates: end: 20041201
  2. NITROGLYCERIN [Concomitant]
  3. ASPIRIN PLUS C (ACETYLSALICYLIC ACID, ASCORBIC ACID) [Concomitant]
  4. BENDROFLUMETHIAZIDE (BENDROFLUMETHIAZIDE) [Concomitant]

REACTIONS (6)
  - APTYALISM [None]
  - FALL [None]
  - NEUROPATHY PERIPHERAL [None]
  - ORTHOSTATIC HYPOTENSION [None]
  - PAIN IN EXTREMITY [None]
  - PARAESTHESIA [None]
